FAERS Safety Report 5387228-1 (Version None)
Quarter: 2007Q3

REPORT INFORMATION
  Report Type: 
  Country: None (occurrence: None)
  Receive Date: 20070716
  Receipt Date: 20070711
  Transmission Date: 20080115
  Serious: Yes (Hospitalization, Other)
  Sender: FDA-Public Use
  Company Number: HQWYE287321MAY07

PATIENT
  Sex: Male

DRUGS (15)
  1. SIROLIMUS [Suspect]
     Indication: PROPHYLAXIS AGAINST TRANSPLANT REJECTION
     Route: 048
     Dates: start: 20070409, end: 20070418
  2. TACROLIMUS [Suspect]
     Indication: PROPHYLAXIS AGAINST TRANSPLANT REJECTION
     Route: 048
     Dates: start: 20070321
  3. PREDNISONE [Suspect]
     Indication: PROPHYLAXIS AGAINST TRANSPLANT REJECTION
     Route: 048
     Dates: start: 20070321
  4. VALCYTE [Concomitant]
     Dosage: NOT PROVIDED
     Route: 065
     Dates: start: 20070321
  5. ACTIGALL [Concomitant]
     Dosage: NOT PROVIDED
     Route: 065
     Dates: start: 20070321
  6. BACTRIM DS [Concomitant]
     Dosage: NOT PROVIDED
     Route: 065
     Dates: start: 20070321
  7. MAGNESIUM OXIDE [Concomitant]
     Dosage: NOT PROVIDED
     Route: 065
     Dates: start: 20070321
  8. PROTONIX [Concomitant]
     Dosage: NOT PROVIDED
     Route: 065
     Dates: start: 20070321
  9. HYDROMORPHONE HCL [Concomitant]
     Dosage: NOT PROVIDED
     Route: 065
     Dates: start: 20070321
  10. ADVAIR DISKUS 100/50 [Concomitant]
     Dosage: NOT PROVIDED
     Route: 065
  11. FLUCONAZOLE [Concomitant]
     Dosage: NOT PROVIDED
     Route: 065
     Dates: start: 20070321
  12. LANTUS [Concomitant]
     Dosage: NOT PROVIDED
     Route: 065
  13. NOVOLOG [Concomitant]
     Dosage: NOT PROVIDED
     Route: 065
  14. COLACE [Concomitant]
     Dosage: NOT PROVIDED
     Route: 065
  15. MYCOPHENOLATE MOFETIL [Concomitant]
     Indication: PROPHYLAXIS AGAINST TRANSPLANT REJECTION
     Route: 065
     Dates: start: 20070321

REACTIONS (4)
  - CONDITION AGGRAVATED [None]
  - DISEASE RECURRENCE [None]
  - HEPATITIS C [None]
  - LIVER TRANSPLANT REJECTION [None]
